FAERS Safety Report 24113404 (Version 1)
Quarter: 2024Q3

REPORT INFORMATION
  Report Type: Report from Study
  Country: US (occurrence: US)
  Receive Date: 20240719
  Receipt Date: 20240719
  Transmission Date: 20241017
  Serious: Yes (Hospitalization, Other)
  Sender: ABBVIE
  Company Number: US-ABBVIE-5841268

PATIENT
  Age: 41 Year
  Sex: Male

DRUGS (4)
  1. RISANKIZUMAB [Suspect]
     Active Substance: RISANKIZUMAB
     Indication: Crohn^s disease
     Dosage: FORM STRENGTH : 360MG  AT WEEK 12(02/2024 OR 03/2024, EXACT DATE UNKNOWN)
     Route: 058
  2. RISANKIZUMAB [Suspect]
     Active Substance: RISANKIZUMAB
     Indication: Crohn^s disease
     Dosage: WEEK 8
     Route: 042
     Dates: start: 20240126
  3. RISANKIZUMAB [Suspect]
     Active Substance: RISANKIZUMAB
     Indication: Crohn^s disease
     Dosage: WEEK 0
     Route: 042
     Dates: start: 2023, end: 2023
  4. RISANKIZUMAB [Suspect]
     Active Substance: RISANKIZUMAB
     Indication: Crohn^s disease
     Dosage: WEEK 4
     Route: 042

REACTIONS (2)
  - Pain [Recovered/Resolved]
  - Ostomy bag placement [Unknown]

NARRATIVE: CASE EVENT DATE: 20240401
